FAERS Safety Report 11297404 (Version 1)
Quarter: 2015Q3

REPORT INFORMATION
  Report Type: Spontaneous
  Country: US (occurrence: US)
  Receive Date: 20150722
  Receipt Date: 20150722
  Transmission Date: 20151125
  Serious: No
  Sender: FDA-Public Use
  Company Number: US-ELI_LILLY_AND_COMPANY-US201008000754

PATIENT
  Age: 67 Year
  Sex: Female

DRUGS (2)
  1. CELEBREX [Concomitant]
     Active Substance: CELECOXIB
  2. EFFIENT [Suspect]
     Active Substance: PRASUGREL HYDROCHLORIDE
     Indication: CORONARY ARTERIAL STENT INSERTION
     Dosage: UNK, UNK
     Dates: start: 201004

REACTIONS (2)
  - Helicobacter infection [Recovering/Resolving]
  - Malaise [Unknown]

NARRATIVE: CASE EVENT DATE: 201006
